FAERS Safety Report 15318917 (Version 1)
Quarter: 2018Q3

REPORT INFORMATION
  Report Type: Spontaneous
  Country: US (occurrence: US)
  Receive Date: 20180820
  Receipt Date: 20180820
  Transmission Date: 20181010
  Serious: Yes (Hospitalization)
  Sender: FDA-Public Use
  Company Number: None

PATIENT
  Sex: Female

DRUGS (2)
  1. RAPAMUNE [Suspect]
     Active Substance: SIROLIMUS
     Indication: HYPERTENSIVE NEPHROPATHY
     Route: 048
     Dates: start: 20160525
  2. NEORAL [Suspect]
     Active Substance: CYCLOSPORINE
     Indication: HYPERTENSIVE NEPHROPATHY
     Route: 048
     Dates: start: 20160525

REACTIONS (1)
  - Infection [None]
